FAERS Safety Report 7220438-7 (Version None)
Quarter: 2011Q1

REPORT INFORMATION
  Report Type: 
  Country: None (occurrence: None)
  Receive Date: 20110111
  Receipt Date: 20110104
  Transmission Date: 20110831
  Serious: Yes (Hospitalization)
  Sender: FDA-Public Use
  Company Number: US-NOVOPROD-318284

PATIENT
  Sex: Female
  Weight: 104.31 kg

DRUGS (8)
  1. VICTOZA [Suspect]
     Dosage: 1.2 MG QD
     Route: 058
     Dates: start: 20100928, end: 20101003
  2. ASPIRIN [Concomitant]
     Indication: PRODUCT USED FOR UNKNOWN INDICATION
     Dosage: UNK
  3. PANTOPRAZOLE [Concomitant]
     Indication: ABDOMINAL DISCOMFORT
     Dosage: UNK
  4. VICTOZA [Suspect]
     Indication: TYPE 2 DIABETES MELLITUS
     Dosage: 1.8 MG, QD
     Route: 058
     Dates: start: 20101004, end: 20101024
  5. COZAAR [Concomitant]
     Indication: PRODUCT USED FOR UNKNOWN INDICATION
     Dosage: UNK
  6. TOPROL-XL [Concomitant]
     Indication: PRODUCT USED FOR UNKNOWN INDICATION
     Dosage: UNK
  7. CLONIDINE [Concomitant]
     Indication: PRODUCT USED FOR UNKNOWN INDICATION
     Dosage: UNK
     Route: 048
  8. VICTOZA [Suspect]
     Dosage: 0.6 MG QD
     Route: 058
     Dates: start: 20100925, end: 20100927

REACTIONS (3)
  - COLITIS [None]
  - GASTROENTERITIS VIRAL [None]
  - NAUSEA [None]
